FAERS Safety Report 22235740 (Version 1)
Quarter: 2023Q2

REPORT INFORMATION
  Report Type: Spontaneous
  Country: FR (occurrence: FR)
  Receive Date: 20230420
  Receipt Date: 20230420
  Transmission Date: 20230722
  Serious: Yes (Hospitalization, Other)
  Sender: FDA-Public Use
  Company Number: None

PATIENT
  Age: 69 Year
  Sex: Male
  Weight: 58.5 kg

DRUGS (1)
  1. SUTENT [Suspect]
     Active Substance: SUNITINIB MALATE
     Indication: Phaeochromocytoma
     Dosage: 25 MG, 1X/DAY
     Dates: start: 202006, end: 20230321

REACTIONS (2)
  - Myocardial infarction [Recovered/Resolved with Sequelae]
  - Coronary angioplasty [Recovered/Resolved with Sequelae]

NARRATIVE: CASE EVENT DATE: 20230225
